FAERS Safety Report 5765153-1 (Version None)
Quarter: 2008Q2

REPORT INFORMATION
  Report Type: 
  Country: None (occurrence: None)
  Receive Date: 20080611
  Receipt Date: 20080603
  Transmission Date: 20081010
  Serious: Yes (Death, Congenital Anomaly)
  Sender: FDA-Public Use
  Company Number: IL-JNJFOC-20080600993

PATIENT

DRUGS (3)
  1. TOPAMAX [Suspect]
     Indication: DRUG EXPOSURE DURING PREGNANCY
  2. VALPROIC ACID [Suspect]
     Indication: DRUG EXPOSURE DURING PREGNANCY
  3. CLONAZEPAM [Suspect]
     Indication: DRUG EXPOSURE DURING PREGNANCY

REACTIONS (2)
  - CEREBRAL CYST [None]
  - CONVULSION NEONATAL [None]
